FAERS Safety Report 4457084-4 (Version None)
Quarter: 2004Q3

REPORT INFORMATION
  Report Type: 
  Country: None (occurrence: None)
  Receive Date: 20040831
  Receipt Date: 20040524
  Transmission Date: 20050211
  Serious: No
  Sender: FDA-Public Use
  Company Number: FABR-10601

PATIENT
  Sex: Male

DRUGS (2)
  1. FABRAZYME [Suspect]
     Indication: FABRY'S DISEASE
     Dosage: 66 MG Q2WKS IV
     Route: 042
     Dates: start: 20030819
  2. SOLU-MEDROL [Concomitant]

REACTIONS (2)
  - ABDOMINAL PAIN [None]
  - UPPER RESPIRATORY TRACT INFECTION [None]
